FAERS Safety Report 20831921 (Version 5)
Quarter: 2025Q3

REPORT INFORMATION
  Report Type: Spontaneous
  Country: EU (occurrence: EU)
  Receive Date: 20220516
  Receipt Date: 20250823
  Transmission Date: 20251021
  Serious: Yes (Life-Threatening, Hospitalization, Other)
  Sender: AUROBINDO
  Company Number: EU-MLMSERVICE-20220427-3519963-1

PATIENT
  Age: 68 Year
  Sex: Male

DRUGS (3)
  1. OXYCODONE HYDROCHLORIDE [Suspect]
     Active Substance: OXYCODONE HYDROCHLORIDE
     Indication: Product used for unknown indication
     Route: 065
  2. OXYCODONE HYDROCHLORIDE [Suspect]
     Active Substance: OXYCODONE HYDROCHLORIDE
     Route: 048
  3. METHYLNALTREXONE [Concomitant]
     Active Substance: METHYLNALTREXONE
     Indication: Constipation prophylaxis
     Route: 065

REACTIONS (7)
  - Bezoar [Recovering/Resolving]
  - Depressed level of consciousness [Recovering/Resolving]
  - Hypoventilation [Recovering/Resolving]
  - Respiratory failure [Recovering/Resolving]
  - Toxicity to various agents [Recovering/Resolving]
  - Unresponsive to stimuli [Recovering/Resolving]
  - Overdose [Unknown]
